FAERS Safety Report 8936041 (Version 1)
Quarter: 2012Q4

REPORT INFORMATION
  Report Type: Spontaneous
  Country: US (occurrence: None)
  Receive Date: 20121128
  Receipt Date: 20121128
  Transmission Date: 20130627
  Serious: Yes (Life-Threatening)
  Sender: FDA-Public Use
  Company Number: None

PATIENT
  Age: 64 Year
  Sex: Male
  Weight: 107.4 kg

DRUGS (1)
  1. PROTAMINE SULFATE [Suspect]
     Indication: AFIB
     Route: 042
     Dates: start: 20120830, end: 20120830

REACTIONS (2)
  - Bronchospasm [None]
  - Anaphylactic reaction [None]
